FAERS Safety Report 7834440-5 (Version None)
Quarter: 2011Q4

REPORT INFORMATION
  Report Type: 
  Country: None (occurrence: None)
  Receive Date: 20111024
  Receipt Date: 20111013
  Transmission Date: 20120403
  Serious: Yes (Hospitalization, Other)
  Sender: FDA-Public Use
  Company Number: US-ELI_LILLY_AND_COMPANY-US201108007276

PATIENT
  Sex: Male
  Weight: 92.971 kg

DRUGS (7)
  1. GLIPIZIDE [Concomitant]
     Dosage: UNK, BID
  2. METFORMIN HCL [Concomitant]
     Dosage: 500 MG, BID
  3. HUMALOG MIX 75/25 [Suspect]
     Indication: TYPE 2 DIABETES MELLITUS
     Dosage: 24 U, EACH MORNING
  4. HUMALOG MIX 75/25 [Suspect]
     Dosage: 14 U, EACH EVENING
  5. HUMALOG MIX 75/25 [Suspect]
     Dosage: 14 U, EACH EVENING
  6. LANTUS [Concomitant]
     Dosage: UNK
     Dates: start: 20071016
  7. HUMALOG MIX 75/25 [Suspect]
     Dosage: 24 U, EACH MORNING

REACTIONS (3)
  - DEAFNESS UNILATERAL [None]
  - MYOCARDIAL INFARCTION [None]
  - HYPOACUSIS [None]
